FAERS Safety Report 11389768 (Version 2)
Quarter: 2015Q3

REPORT INFORMATION
  Report Type: Report from Study
  Country: US (occurrence: US)
  Receive Date: 20150817
  Receipt Date: 20150924
  Transmission Date: 20151125
  Serious: No
  Sender: FDA-Public Use
  Company Number: US-AMGEN-USASP2015081832

PATIENT
  Age: 38 Year
  Sex: Female

DRUGS (1)
  1. ENBREL [Suspect]
     Active Substance: ETANERCEPT
     Indication: RHEUMATOID ARTHRITIS
     Dosage: 50 MG, QWK, ON TUESDAYS
     Route: 065
     Dates: start: 20150728

REACTIONS (5)
  - Nasal congestion [Not Recovered/Not Resolved]
  - Injection site bruising [Recovered/Resolved]
  - Limb injury [Unknown]
  - Chest discomfort [Unknown]
  - Pain in extremity [Not Recovered/Not Resolved]

NARRATIVE: CASE EVENT DATE: 20150728
